FAERS Safety Report 9473514 (Version 1)
Quarter: 2013Q3

REPORT INFORMATION
  Report Type: Spontaneous
  Country: US (occurrence: US)
  Receive Date: 20130823
  Receipt Date: 20130823
  Transmission Date: 20140515
  Serious: No
  Sender: FDA-Public Use
  Company Number: US-BRISTOL-MYERS SQUIBB COMPANY-19058569

PATIENT
  Age: 57 Year
  Sex: Female
  Weight: 56.69 kg

DRUGS (16)
  1. SPRYCEL (CML) TABS 50 MG [Suspect]
     Indication: CHRONIC MYELOID LEUKAEMIA
     Dosage: TABLET
     Route: 048
     Dates: start: 201206
  2. VITAMIN C [Concomitant]
  3. SYNTHROID [Concomitant]
  4. RESTORIL [Concomitant]
  5. PROBIOTICA [Concomitant]
  6. POTASSIUM [Concomitant]
  7. PAXIL [Concomitant]
  8. MAGNESIUM [Concomitant]
  9. LOVAZA [Concomitant]
  10. KLONOPIN [Concomitant]
  11. GINSENG [Concomitant]
  12. CYTOMEL [Concomitant]
  13. CARVEDILOL [Concomitant]
  14. CALCIUM [Concomitant]
  15. BABY ASPIRIN [Concomitant]
  16. ADRENALIN [Concomitant]

REACTIONS (4)
  - Rash [Recovering/Resolving]
  - Gastrointestinal motility disorder [Not Recovered/Not Resolved]
  - Anaemia [Unknown]
  - Fatigue [Unknown]
